FAERS Safety Report 10013976 (Version 2)
Quarter: 2014Q1

REPORT INFORMATION
  Report Type: Spontaneous
  Country: DE (occurrence: DE)
  Receive Date: 20140316
  Receipt Date: 20140331
  Transmission Date: 20141002
  Serious: Yes (Death, Life-Threatening, Other)
  Sender: FDA-Public Use
  Company Number: DE-JNJFOC-20140308291

PATIENT
  Age: 84 Year
  Sex: Male
  Weight: 92 kg

DRUGS (8)
  1. XARELTO [Suspect]
     Indication: CEREBROVASCULAR ACCIDENT PROPHYLAXIS
     Route: 048
  2. XARELTO [Suspect]
     Indication: ATRIAL FIBRILLATION
     Route: 048
  3. ASS [Concomitant]
     Indication: HYPERTENSION
     Route: 065
     Dates: start: 20080101, end: 20140122
  4. VOCADO [Concomitant]
     Indication: HYPERTENSION
     Route: 065
     Dates: start: 20080101, end: 20140122
  5. FUROSEMID [Concomitant]
     Indication: HYPERTENSION
     Route: 065
     Dates: start: 20080101, end: 20140122
  6. MOXONIDIN [Concomitant]
     Indication: HYPERTENSION
     Route: 065
     Dates: start: 20080101, end: 20140122
  7. FINASTERIDE [Concomitant]
     Indication: HYPERTENSION
     Route: 065
     Dates: start: 20080101, end: 20140122
  8. RAMIPRIL PLUS [Concomitant]
     Indication: HYPERTENSION
     Route: 065
     Dates: start: 20080101, end: 20140122

REACTIONS (3)
  - Pulmonary embolism [Fatal]
  - Thrombosis [Fatal]
  - Haemorrhage [Unknown]
